FAERS Safety Report 8322842-2 (Version None)
Quarter: 2012Q2

REPORT INFORMATION
  Report Type: 
  Country: None (occurrence: None)
  Receive Date: 20120430
  Receipt Date: 20120424
  Transmission Date: 20120825
  Serious: Yes (Hospitalization)
  Sender: FDA-Public Use
  Company Number: PHHY2012GB034742

PATIENT
  Age: 83 Year
  Sex: Male

DRUGS (18)
  1. SPIRONOLACTONE [Suspect]
     Indication: CARDIAC FAILURE
     Dosage: 25 MG, QD
     Route: 048
     Dates: start: 20120103, end: 20120104
  2. BISOPROLOL FUMARATE [Concomitant]
  3. LEVOTHYROXINE SODIUM [Concomitant]
  4. ASPIRIN [Concomitant]
  5. SIMVASTATIN [Concomitant]
  6. LANSOPRAZOLE [Concomitant]
  7. NITROGLYCERIN [Concomitant]
  8. FUROSEMIDE [Suspect]
     Dosage: 40 MG, BID
     Dates: start: 20111231, end: 20120103
  9. RAMIPRIL [Suspect]
     Indication: CARDIAC FAILURE
     Dosage: 2.5 MG, QD
     Dates: start: 20111230, end: 20111231
  10. ZOPICLONE [Concomitant]
  11. FUROSEMIDE [Suspect]
     Indication: CARDIAC FAILURE
     Dosage: 80 MG, BID
     Dates: start: 20111230, end: 20111231
  12. FINASTERIDE [Concomitant]
  13. RAMIPRIL [Suspect]
     Dosage: 5 MG, QD
     Route: 048
     Dates: start: 20111231, end: 20120104
  14. CITALOPRAM [Concomitant]
  15. CLOPIDOGREL [Concomitant]
  16. TAMSULOSIN HCL [Concomitant]
  17. BUMETANIDE [Suspect]
     Indication: CARDIAC FAILURE
     Dosage: 1 G, QD
     Route: 048
     Dates: start: 20120103, end: 20120104
  18. MORPHINE SULFATE [Concomitant]

REACTIONS (2)
  - RENAL IMPAIRMENT [None]
  - BLOOD CREATININE INCREASED [None]
